FAERS Safety Report 9224722 (Version 1)
Quarter: 2013Q2

REPORT INFORMATION
  Report Type: Spontaneous
  Country: US (occurrence: None)
  Receive Date: 20130409
  Receipt Date: 20130409
  Transmission Date: 20140414
  Serious: No
  Sender: FDA-Public Use
  Company Number: None

PATIENT
  Age: 20 Year
  Sex: Male
  Weight: 76 kg

DRUGS (1)
  1. PIPERCILLIN\TAZOBACTAM [Suspect]
     Dosage: ZOSAN 4-5GM 9.8 IV
     Route: 042

REACTIONS (4)
  - Product substitution issue [None]
  - Product deposit [None]
  - Drug effect decreased [None]
  - Incorrect drug administration rate [None]
